FAERS Safety Report 8939366 (Version 2)
Quarter: 2013Q3

REPORT INFORMATION
  Report Type: Report from Study
  Country: CA (occurrence: CA)
  Receive Date: 20121203
  Receipt Date: 20130823
  Transmission Date: 20140515
  Serious: Yes (Other)
  Sender: FDA-Public Use
  Company Number: CA-JNJFOC-20121105646

PATIENT
  Age: 37 Year
  Sex: Female
  Weight: 47 kg

DRUGS (8)
  1. REMICADE [Suspect]
     Indication: CROHN^S DISEASE
     Route: 042
     Dates: start: 20120718
  2. REMICADE [Suspect]
     Indication: CROHN^S DISEASE
     Route: 042
     Dates: start: 20121121, end: 20121121
  3. REMICADE [Suspect]
     Indication: CROHN^S DISEASE
     Route: 042
     Dates: start: 2012
  4. BENADRYL [Concomitant]
     Indication: PREMEDICATION
     Route: 042
  5. GRAVOL [Concomitant]
     Indication: PREMEDICATION
     Route: 065
  6. HYDROCORTISONE [Concomitant]
     Indication: PREMEDICATION
     Route: 042
  7. AERIUS [Concomitant]
     Indication: PREMEDICATION
     Route: 065
  8. TYLENOL [Concomitant]
     Indication: PREMEDICATION
     Route: 065

REACTIONS (6)
  - Dyspnoea [Recovered/Resolved]
  - Chest discomfort [Recovered/Resolved]
  - Infusion related reaction [Recovered/Resolved]
  - Vomiting [Recovered/Resolved]
  - Nausea [Recovered/Resolved]
  - Flushing [Recovered/Resolved]
